FAERS Safety Report 10533587 (Version 1)
Quarter: 2014Q4

REPORT INFORMATION
  Report Type: Spontaneous
  Country: US (occurrence: US)
  Receive Date: 20141022
  Receipt Date: 20141022
  Transmission Date: 20150529
  Serious: Yes (Other)
  Sender: FDA-Public Use
  Company Number: US-BRISTOL-MYERS SQUIBB COMPANY-21496716

PATIENT
  Age: 83 Year
  Sex: Female
  Weight: 65.76 kg

DRUGS (2)
  1. COUMADIN [Suspect]
     Active Substance: WARFARIN SODIUM
  2. REVATIO [Interacting]
     Active Substance: SILDENAFIL CITRATE
     Indication: LUNG DISORDER

REACTIONS (5)
  - Drug level increased [Unknown]
  - Dizziness [Unknown]
  - Drug interaction [Unknown]
  - Pneumonia [Unknown]
  - Upper respiratory tract infection [Unknown]

NARRATIVE: CASE EVENT DATE: 2013
